FAERS Safety Report 23250352 (Version 2)
Quarter: 2023Q4

REPORT INFORMATION
  Report Type: Spontaneous
  Country: US (occurrence: US)
  Receive Date: 20231201
  Receipt Date: 20231205
  Transmission Date: 20240109
  Serious: No
  Sender: FDA-Public Use
  Company Number: US-PFIZER INC-202300393112

PATIENT
  Age: 72 Year
  Sex: Male
  Weight: 78.93 kg

DRUGS (1)
  1. IBRANCE [Suspect]
     Active Substance: PALBOCICLIB
     Indication: Liposarcoma

REACTIONS (3)
  - Feeling cold [Unknown]
  - Blood iron decreased [Unknown]
  - Off label use [Unknown]
